FAERS Safety Report 5588909-7 (Version None)
Quarter: 2008Q1

REPORT INFORMATION
  Report Type: 
  Country: None (occurrence: None)
  Receive Date: 20080111
  Receipt Date: 20080102
  Transmission Date: 20080703
  Serious: Yes (Other)
  Sender: FDA-Public Use
  Company Number: CN-ABBOTT-08P-035-0432491-00

PATIENT

DRUGS (9)
  1. CYCLOSPORINE [Suspect]
     Indication: IMMUNOSUPPRESSION
  2. CYCLOSPORINE [Suspect]
     Dosage: DOSE ADJUSTED TO DRUG CONCENTRATIONS
  3. CYCLOSPORINE [Suspect]
  4. MYCOPHENOLATE MOFETIL [Suspect]
     Indication: IMMUNOSUPPRESSION
  5. METHYLPREDNISOLONE [Suspect]
     Indication: IMMUNOSUPPRESSION
  6. METHYLPREDNISOLONE [Suspect]
  7. METHYLPREDNISOLONE [Suspect]
  8. METHYLPREDNISOLONE [Suspect]
  9. PREDNISONE TAB [Suspect]
     Indication: IMMUNOSUPPRESSION

REACTIONS (2)
  - HEPATIC FUNCTION ABNORMAL [None]
  - KIDNEY TRANSPLANT REJECTION [None]
